FAERS Safety Report 21396516 (Version 4)
Quarter: 2022Q4

REPORT INFORMATION
  Report Type: Spontaneous
  Country: US (occurrence: US)
  Receive Date: 20220930
  Receipt Date: 20221031
  Transmission Date: 20230112
  Serious: Yes (Other)
  Sender: FDA-Public Use
  Company Number: US-REGENERON PHARMACEUTICALS, INC.-2022-126711

PATIENT
  Sex: Female

DRUGS (1)
  1. EYLEA [Suspect]
     Active Substance: AFLIBERCEPT
     Indication: Neovascular age-related macular degeneration
     Dosage: 0.2 MG, Q8W, INTO BOTH EYES (STRENGTH: 2 MG/0.05 ML)

REACTIONS (4)
  - Retinal haemorrhage [Recovered/Resolved]
  - Visual acuity reduced [Not Recovered/Not Resolved]
  - Non-infectious endophthalmitis [Recovered/Resolved]
  - Vision blurred [Recovered/Resolved]

NARRATIVE: CASE EVENT DATE: 20220926
